FAERS Safety Report 5309439-3 (Version None)
Quarter: 2007Q2

REPORT INFORMATION
  Report Type: 
  Country: None (occurrence: None)
  Receive Date: 20070427
  Receipt Date: 20070418
  Transmission Date: 20071010
  Serious: Yes (Hospitalization)
  Sender: FDA-Public Use
  Company Number: PHRM2007FR00914

PATIENT
  Sex: Female
  Weight: 48 kg

DRUGS (3)
  1. STALEVO 100 [Suspect]
     Indication: PARKINSON'S DISEASE
     Dosage: 600/300/75 MG/DAY
     Route: 048
     Dates: start: 20060201
  2. L-DOPA [Concomitant]
     Indication: PARKINSON'S DISEASE
     Route: 048
  3. ARICEPT [Suspect]
     Indication: DEMENTIA
     Dosage: 10 MG, QD
     Route: 048

REACTIONS (2)
  - CEREBROVASCULAR ACCIDENT [None]
  - HEMIPARESIS [None]
